FAERS Safety Report 21411210 (Version 2)
Quarter: 2022Q4

REPORT INFORMATION
  Report Type: Spontaneous
  Country: US (occurrence: US)
  Receive Date: 20221005
  Receipt Date: 20221103
  Transmission Date: 20230113
  Serious: No
  Sender: FDA-Public Use
  Company Number: US-PFIZER INC-202201201525

PATIENT
  Age: 47 Year
  Sex: Female
  Weight: 55.782 kg

DRUGS (2)
  1. PAXLOVID [Suspect]
     Active Substance: NIRMATRELVIR\RITONAVIR
     Indication: COVID-19 treatment
     Dosage: UNK
     Dates: start: 20220917, end: 20220921
  2. ASPIRIN [Concomitant]
     Active Substance: ASPIRIN
     Dosage: UNK
     Dates: start: 20210715

REACTIONS (2)
  - COVID-19 [Recovering/Resolving]
  - Disease recurrence [Recovering/Resolving]

NARRATIVE: CASE EVENT DATE: 20220927
